FAERS Safety Report 16858269 (Version 1)
Quarter: 2019Q3

REPORT INFORMATION
  Report Type: Spontaneous
  Country: CA (occurrence: CA)
  Receive Date: 20190926
  Receipt Date: 20190926
  Transmission Date: 20191005
  Serious: Yes (Other)
  Sender: FDA-Public Use
  Company Number: CA-PFIZER INC-2019416445

PATIENT
  Sex: Male

DRUGS (7)
  1. HUMIRA [Suspect]
     Active Substance: ADALIMUMAB
     Indication: PSORIATIC ARTHROPATHY
     Dosage: 40 MILLIGRAM, Q2WK
     Route: 058
  2. XELJANZ [Concomitant]
     Active Substance: TOFACITINIB CITRATE
     Dosage: UNK
     Route: 065
  3. INDOCID [INDOMETACIN SODIUM] [Suspect]
     Active Substance: INDOMETHACIN SODIUM
     Dosage: 50 MILLIGRAM, BID
     Route: 048
  4. OTEZLA [Suspect]
     Active Substance: APREMILAST
     Dosage: 30 MILLIGRAM, BID
     Route: 048
  5. PREDNISONE. [Concomitant]
     Active Substance: PREDNISONE
     Dosage: UNK
  6. ENBREL [Suspect]
     Active Substance: ETANERCEPT
     Dosage: UNK
     Route: 065
  7. METHOTREXATE SODIUM. [Suspect]
     Active Substance: METHOTREXATE SODIUM
     Dosage: 20 MILLIGRAM, QWK
     Route: 058

REACTIONS (9)
  - Infection [Unknown]
  - Sepsis [Unknown]
  - Incorrect route of product administration [Unknown]
  - Arthritis bacterial [Unknown]
  - Nervous system disorder [Unknown]
  - Arthralgia [Unknown]
  - Joint swelling [Unknown]
  - Psoriasis [Unknown]
  - Drug ineffective [Unknown]
